FAERS Safety Report 12970439 (Version 1)
Quarter: 2016Q4

REPORT INFORMATION
  Report Type: Spontaneous
  Country: FR (occurrence: FR)
  Receive Date: 20161123
  Receipt Date: 20161123
  Transmission Date: 20170207
  Serious: Yes (Hospitalization)
  Sender: FDA-Public Use
  Company Number: FR-PFIZER INC-2016511488

PATIENT
  Age: 56 Year
  Sex: Male

DRUGS (8)
  1. OXALIPLATIN. [Suspect]
     Active Substance: OXALIPLATIN
     Indication: COLORECTAL CANCER METASTATIC
     Dosage: UNK (1ST COURSE)
     Dates: start: 201606
  2. OXALIPLATIN. [Suspect]
     Active Substance: OXALIPLATIN
     Dosage: 200 MG, 6TH COURSE
  3. ERBITUX [Suspect]
     Active Substance: CETUXIMAB
     Dosage: 250 MG/M2 (9TH COURSE)
     Route: 041
     Dates: start: 20161030, end: 20161030
  4. 5-FLUOROURACIL /00098801/ [Concomitant]
     Active Substance: FLUOROURACIL
     Indication: COLORECTAL CANCER METASTATIC
     Dosage: UNK (1ST COURSE)
     Dates: start: 201606
  5. OXALIPLATIN. [Suspect]
     Active Substance: OXALIPLATIN
     Dosage: 85 MG/M2 (9TH COURSE)
     Route: 041
     Dates: start: 20161030, end: 20161030
  6. EMEND [Concomitant]
     Active Substance: APREPITANT
     Dosage: UNK
  7. TETRALYSAL /00052901/ [Concomitant]
     Active Substance: LYMECYCLINE
     Dosage: UNK
  8. ERBITUX [Suspect]
     Active Substance: CETUXIMAB
     Indication: COLORECTAL CANCER METASTATIC
     Dosage: UNK (1ST COURSE)
     Dates: start: 201606

REACTIONS (7)
  - Infusion related reaction [Recovered/Resolved]
  - Hypotension [Recovered/Resolved]
  - Paraesthesia [Unknown]
  - Hypersensitivity [Unknown]
  - Hyperhidrosis [Unknown]
  - Hot flush [Unknown]
  - Tachycardia [Unknown]

NARRATIVE: CASE EVENT DATE: 20161030
